FAERS Safety Report 6942271-3 (Version None)
Quarter: 2010Q3

REPORT INFORMATION
  Report Type: 
  Country: None (occurrence: None)
  Receive Date: 20100826
  Receipt Date: 20100817
  Transmission Date: 20110219
  Serious: Yes (Hospitalization)
  Sender: FDA-Public Use
  Company Number: US-ALEXION-A201000565

PATIENT

DRUGS (1)
  1. SOLIRIS [Suspect]
     Indication: PAROXYSMAL NOCTURNAL HAEMOGLOBINURIA
     Dosage: UNK
     Route: 042

REACTIONS (5)
  - CLOSTRIDIUM DIFFICILE COLITIS [None]
  - DYSPNOEA [None]
  - ESCHERICHIA URINARY TRACT INFECTION [None]
  - RENAL FAILURE [None]
  - SEPSIS [None]
